FAERS Safety Report 7929507-7 (Version None)
Quarter: 2011Q4

REPORT INFORMATION
  Report Type: 
  Country: None (occurrence: None)
  Receive Date: 20111121
  Receipt Date: 20111110
  Transmission Date: 20120403
  Serious: Yes (Other)
  Sender: FDA-Public Use
  Company Number: CA-ELI_LILLY_AND_COMPANY-CA201111003357

PATIENT
  Sex: Male

DRUGS (8)
  1. BUPROPION HCL [Concomitant]
  2. MONOPRIL [Concomitant]
  3. CYMBALTA [Concomitant]
  4. ZYPREXA [Suspect]
     Dosage: 5 MG, UNK
  5. ASPIRIN [Concomitant]
  6. ATENOLOL [Concomitant]
  7. ZYPREXA [Suspect]
     Dosage: 10 MG, EACH EVENING
     Dates: start: 19980609
  8. ATIVAN [Concomitant]

REACTIONS (12)
  - HEPATIC CYST [None]
  - HYPOAESTHESIA [None]
  - HYPERLIPIDAEMIA [None]
  - BLOOD AMYLASE INCREASED [None]
  - WOUND [None]
  - MYOCARDIAL INFARCTION [None]
  - LEFT VENTRICULAR HYPERTROPHY [None]
  - ELECTROCARDIOGRAM T WAVE ABNORMAL [None]
  - HEPATIC STEATOSIS [None]
  - ERECTILE DYSFUNCTION [None]
  - PAIN IN EXTREMITY [None]
  - DIABETES MELLITUS [None]
